FAERS Safety Report 10376236 (Version 1)
Quarter: 2014Q3

REPORT INFORMATION
  Report Type: Spontaneous
  Country: US (occurrence: US)
  Receive Date: 20140811
  Receipt Date: 20140811
  Transmission Date: 20150326
  Serious: No
  Sender: FDA-Public Use
  Company Number: US-ASTRAZENECA-2014SE02049

PATIENT
  Age: 74 Year
  Sex: Female
  Weight: 64.9 kg

DRUGS (4)
  1. ARIMIDEX [Suspect]
     Active Substance: ANASTROZOLE
     Indication: BREAST CANCER
     Dosage: DAILY
     Route: 048
     Dates: start: 2012, end: 2012
  2. TAMOXIFEN (NON AZ PRODUCT) [Suspect]
     Active Substance: TAMOXIFEN
     Indication: BREAST CANCER
     Dosage: MANUFACTURED BY WATSON, 20 MG DAILY IN FEB -MAR 2013
     Route: 048
  3. TAMOXIFEN (NON AZ PRODUCT) [Suspect]
     Active Substance: TAMOXIFEN
     Indication: BREAST CANCER
     Dosage: 20 MG DAILY MANUFACTURED BY MYLAN
     Route: 048
     Dates: start: 201312
  4. TAMOXIFEN (NON AZ PRODUCT) [Suspect]
     Active Substance: TAMOXIFEN
     Indication: BREAST CANCER
     Dosage: MANUFACTURED BY TEVA, 20 MG DAILY, MAR-APR-2012
     Route: 048
     Dates: end: 201302

REACTIONS (6)
  - Nausea [Recovered/Resolved]
  - Asthenia [Recovered/Resolved]
  - Influenza like illness [Recovered/Resolved]
  - Drug intolerance [Unknown]
  - Tremor [Recovered/Resolved]
  - Adverse drug reaction [Unknown]

NARRATIVE: CASE EVENT DATE: 2012
